FAERS Safety Report 8063341-5 (Version None)
Quarter: 2012Q1

REPORT INFORMATION
  Report Type: 
  Country: None (occurrence: None)
  Receive Date: 20120117
  Receipt Date: 20120103
  Transmission Date: 20120608
  Serious: Yes (Death)
  Sender: FDA-Public Use
  Company Number: B0773235A

PATIENT
  Age: 33 Year
  Sex: Male

DRUGS (9)
  1. LAMOTRIGINE [Suspect]
     Dosage: ORAL
     Route: 048
  2. DEXTROMETHORPHANHBR + PARACETAMOL + PSEUDOPHEDRINEHC1 (FORM (ACETAM+DE [Suspect]
     Dosage: ORAL
     Route: 048
  3. PAROXETINE HYDROCHLORIDE [Suspect]
     Dosage: ORAL
     Route: 048
  4. LORATADINE [Suspect]
     Dosage: ORAL
     Route: 048
  5. ACETAMINOPHEN [Suspect]
     Dosage: ORAL
     Route: 048
  6. DIPHENHYDRAMINE HCL [Suspect]
     Dosage: ORAL
     Route: 048
  7. QUETIAPINE FUMARATE [Suspect]
     Dosage: ORAL
     Route: 048
  8. LITHIUM CARBONATE [Suspect]
     Dosage: ORAL
     Route: 048
  9. TOPIRAMATE [Suspect]
     Dosage: ORAL
     Route: 048

REACTIONS (1)
  - COMPLETED SUICIDE [None]
